FAERS Safety Report 4734176-3 (Version None)
Quarter: 2005Q3

REPORT INFORMATION
  Report Type: 
  Country: None (occurrence: None)
  Receive Date: 20050804
  Receipt Date: 20050614
  Transmission Date: 20060218
  Serious: Yes (Other)
  Sender: FDA-Public Use
  Company Number: PHEH2005US06743

PATIENT
  Age: 46 Year
  Sex: Female
  Weight: 83 kg

DRUGS (7)
  1. ZELNORM [Suspect]
     Indication: IRRITABLE BOWEL SYNDROME
     Dosage: UNK, PRN
     Route: 048
     Dates: start: 20021001
  2. MIRALAX [Concomitant]
     Dosage: 1 DF, QD
     Route: 048
  3. SYNTHROID [Concomitant]
     Dosage: 0.15 UNK, QD
     Dates: start: 19990101
  4. TRAZODONE HCL [Concomitant]
     Indication: FIBROMYALGIA
     Dosage: 200 UNK, QHS
     Dates: start: 20010101
  5. FLOVENT [Concomitant]
     Indication: ASTHMA
     Dosage: 2 PUFFS, QD
     Dates: start: 20000101
  6. ALBUTEROL [Concomitant]
     Indication: ASTHMA
     Dosage: , PRN
     Dates: start: 20000101
  7. DARVOCET-N 100 [Concomitant]
     Indication: FIBROMYALGIA
     Route: 048
     Dates: start: 20040101

REACTIONS (2)
  - OVARIAN CYST [None]
  - PELVIC PAIN [None]
